FAERS Safety Report 9855387 (Version 3)
Quarter: 2014Q1

REPORT INFORMATION
  Report Type: Spontaneous
  Country: CA (occurrence: CA)
  Receive Date: 20140130
  Receipt Date: 20140221
  Transmission Date: 20141002
  Serious: Yes (Other)
  Sender: FDA-Public Use
  Company Number: CA-JNJFOC-20140115072

PATIENT
  Sex: Male
  Weight: 74.83 kg

DRUGS (8)
  1. ULTRAM [Suspect]
     Indication: PRODUCT USED FOR UNKNOWN INDICATION
     Dosage: 3 TIMES A DAY
     Route: 065
  2. GABAPENTIN [Suspect]
     Indication: PRODUCT USED FOR UNKNOWN INDICATION
     Dosage: 3 TIMES A DAY
     Route: 065
  3. SANDOSTATIN [Suspect]
     Indication: ACROMEGALY
     Dosage: MONTH
     Route: 065
  4. SANDOSTATIN [Suspect]
     Indication: ACROMEGALY
     Dosage: MONTH
     Route: 065
  5. SANDOSTATIN [Suspect]
     Indication: ACROMEGALY
     Dosage: EVERY 3 WEEKS
     Route: 065
  6. SANDOSTATIN [Suspect]
     Indication: ACROMEGALY
     Dosage: MONTHLY
     Route: 065
  7. CELEBREX [Concomitant]
     Route: 065
  8. PROSCAR [Concomitant]
     Indication: BENIGN PROSTATIC HYPERPLASIA
     Route: 065

REACTIONS (26)
  - Acromegaly [Not Recovered/Not Resolved]
  - Empty sella syndrome [Not Recovered/Not Resolved]
  - Sacroiliitis [Not Recovered/Not Resolved]
  - Pulmonary haemorrhage [Unknown]
  - Cholelithiasis [Unknown]
  - Pituitary tumour benign [Not Recovered/Not Resolved]
  - Hand deformity [Not Recovered/Not Resolved]
  - Arthritis [Not Recovered/Not Resolved]
  - Rotator cuff syndrome [Not Recovered/Not Resolved]
  - Nose deformity [Not Recovered/Not Resolved]
  - Head deformity [Not Recovered/Not Resolved]
  - Scoliosis [Not Recovered/Not Resolved]
  - Activities of daily living impaired [Not Recovered/Not Resolved]
  - Arthropathy [Not Recovered/Not Resolved]
  - Bone disorder [Not Recovered/Not Resolved]
  - Renal cyst [Unknown]
  - Knee arthroplasty [Recovered/Resolved with Sequelae]
  - Bone pain [Not Recovered/Not Resolved]
  - Back pain [Not Recovered/Not Resolved]
  - Social avoidant behaviour [Not Recovered/Not Resolved]
  - Fatigue [Not Recovered/Not Resolved]
  - Insomnia [Not Recovered/Not Resolved]
  - Pain [Not Recovered/Not Resolved]
  - Sleep apnoea syndrome [Recovering/Resolving]
  - Malaise [Not Recovered/Not Resolved]
  - Musculoskeletal discomfort [Not Recovered/Not Resolved]
